FAERS Safety Report 5069321-6 (Version None)
Quarter: 2006Q3

REPORT INFORMATION
  Report Type: 
  Country: None (occurrence: None)
  Receive Date: 20060802
  Receipt Date: 20060802
  Transmission Date: 20061208
  Serious: Yes (Death)
  Sender: FDA-Public Use
  Company Number: None

PATIENT
  Sex: Female
  Weight: 102.2 kg

DRUGS (2)
  1. XIGRIS [Suspect]
     Indication: SEPTIC SHOCK
     Dosage: 24 MCG/KG/HR  {-  IV  SEE IMAGE
     Route: 042
     Dates: start: 20060713
  2. XIGRIS [Suspect]
     Indication: SEPTIC SHOCK
     Dosage: 24 MCG/KG/HR  {-  IV  SEE IMAGE
     Route: 042
     Dates: start: 20060714

REACTIONS (1)
  - HAEMORRHAGE [None]
